FAERS Safety Report 6650392-8 (Version None)
Quarter: 2010Q1

REPORT INFORMATION
  Report Type: 
  Country: None (occurrence: None)
  Receive Date: 20100322
  Receipt Date: 20100308
  Transmission Date: 20100710
  Serious: Yes (Hospitalization)
  Sender: FDA-Public Use
  Company Number: 008430

PATIENT
  Sex: Female

DRUGS (6)
  1. KEPPRA [Suspect]
     Indication: PROPHYLAXIS
     Dosage: (ORAL)
     Route: 048
     Dates: start: 20100210
  2. NEXIUM [Suspect]
     Dosage: (ORAL)
     Route: 048
  3. SECTRAL [Suspect]
     Dosage: (ORAL)
     Route: 048
  4. ZOCOR [Suspect]
     Dosage: (ORAL)
     Route: 048
  5. MERONEM /01250501/ (MERONEM (MEROPENEME)) (NOT SPECIFIED) [Suspect]
     Indication: MENINGITIS
     Dosage: (INTRAMUSCULAR)
     Route: 030
     Dates: start: 20100201, end: 20100219
  6. VANCOMYCIN [Concomitant]

REACTIONS (2)
  - PRURITUS [None]
  - RASH ERYTHEMATOUS [None]
